FAERS Safety Report 5436494-2 (Version None)
Quarter: 2007Q3

REPORT INFORMATION
  Report Type: 
  Country: None (occurrence: None)
  Receive Date: 20070831
  Receipt Date: 20070822
  Transmission Date: 20080115
  Serious: Yes (Death, Life-Threatening, Hospitalization)
  Sender: FDA-Public Use
  Company Number: GB-JNJFOC-20040202798

PATIENT
  Sex: Male

DRUGS (9)
  1. REMICADE [Suspect]
     Indication: RHEUMATOID ARTHRITIS
     Dosage: 3 MG/KG, TOTAL OF 3 INFUSIONS
     Route: 042
  2. AZATHIOPRINE [Suspect]
     Indication: RHEUMATOID ARTHRITIS
  3. SALAZOPYRINE [Concomitant]
  4. SULFASALAZINE [Concomitant]
  5. PREDNISOLONE [Concomitant]
  6. ETORICOXIB [Concomitant]
  7. DIHYDROCODEINE BITARTRATE INJ [Concomitant]
  8. ALENDRONATE SODIUM [Concomitant]
  9. CALICHEW [Concomitant]

REACTIONS (2)
  - ALVEOLITIS [None]
  - PULMONARY FIBROSIS [None]
